FAERS Safety Report 25024922 (Version 1)
Quarter: 2025Q1

REPORT INFORMATION
  Report Type: Spontaneous
  Country: AU (occurrence: AU)
  Receive Date: 20250228
  Receipt Date: 20250228
  Transmission Date: 20250408
  Serious: Yes (Hospitalization)
  Sender: ELI LILLY AND COMPANY
  Company Number: AU-ELI_LILLY_AND_COMPANY-AU202502014762

PATIENT
  Age: 34 Year
  Sex: Female

DRUGS (1)
  1. MOUNJARO [Suspect]
     Active Substance: TIRZEPATIDE
     Indication: Hypothyroidism
     Dosage: 2.5 MG, WEEKLY (1/W)
     Route: 065
     Dates: start: 202501

REACTIONS (4)
  - Hypothermia [Unknown]
  - Hypoglycaemia [Unknown]
  - Brain fog [Unknown]
  - Off label use [Unknown]

NARRATIVE: CASE EVENT DATE: 20250101
